FAERS Safety Report 20476306 (Version 1)
Quarter: 2022Q1

REPORT INFORMATION
  Report Type: Spontaneous
  Country: FR (occurrence: FR)
  Receive Date: 20220215
  Receipt Date: 20220215
  Transmission Date: 20220423
  Serious: Yes (Other)
  Sender: FDA-Public Use
  Company Number: None

PATIENT
  Age: 48 Year
  Sex: Female

DRUGS (3)
  1. TUKYSA [Suspect]
     Active Substance: TUCATINIB
     Indication: Breast cancer
     Dosage: 300 MG, BID
     Route: 048
     Dates: start: 20211020, end: 20211110
  2. XELODA [Suspect]
     Active Substance: CAPECITABINE
     Indication: Breast cancer
     Dosage: XELODA 500 MG, COMPRIM? PELLICUL?
     Route: 048
     Dates: start: 20211020, end: 20211110
  3. HERCEPTIN LYOPHILISAT [Concomitant]
     Indication: Breast cancer
     Dosage: 600 MG/5 ML, SOLUTION INJECTABLE
     Route: 058

REACTIONS (1)
  - Angina pectoris [Recovered/Resolved]

NARRATIVE: CASE EVENT DATE: 20211020
